FAERS Safety Report 6338424-8 (Version None)
Quarter: 2009Q3

REPORT INFORMATION
  Report Type: 
  Country: None (occurrence: None)
  Receive Date: 20090902
  Receipt Date: 20090821
  Transmission Date: 20100115
  Serious: Yes (Disabling)
  Sender: FDA-Public Use
  Company Number: NL-MERCK-0908NLD00010

PATIENT
  Age: 69 Year
  Sex: Female

DRUGS (2)
  1. VYTORIN [Suspect]
     Indication: HYPERCHOLESTEROLAEMIA
     Route: 048
     Dates: start: 20050101, end: 20050101
  2. VYTORIN [Suspect]
     Route: 048
     Dates: start: 20050101

REACTIONS (2)
  - HEPATIC FUNCTION ABNORMAL [None]
  - MUSCLE SPASMS [None]
